FAERS Safety Report 10161636 (Version 2)
Quarter: 2014Q2

REPORT INFORMATION
  Report Type: Spontaneous
  Country: KR (occurrence: KR)
  Receive Date: 20140509
  Receipt Date: 20140612
  Transmission Date: 20141212
  Serious: Yes (Other)
  Sender: FDA-Public Use
  Company Number: KR-AMGEN-KORSP2014033948

PATIENT
  Age: 36 Year
  Sex: Female

DRUGS (9)
  1. ARANESP [Suspect]
     Indication: NEPHROGENIC ANAEMIA
     Dosage: 40 MUG/WEEK
     Route: 058
     Dates: start: 20140224, end: 20140331
  2. EPOETIN ALFA [Suspect]
     Indication: NEPHROGENIC ANAEMIA
     Dosage: 4000 IU/WEEK
     Route: 058
     Dates: start: 20060819, end: 20140224
  3. PREDNISOLONE [Concomitant]
     Dosage: UNK
     Route: 065
  4. MYCOPHENOLATE [Concomitant]
     Dosage: UNK
     Route: 065
  5. LANSOPRAZOLE [Concomitant]
     Dosage: UNK
     Route: 065
  6. AMLODIPINE [Concomitant]
     Dosage: UNK
     Route: 065
  7. IRBESARTAN [Concomitant]
     Dosage: UNK
     Route: 065
  8. ROSUVASTATIN [Concomitant]
     Dosage: UNK
     Route: 065
  9. CALCITRIOL [Concomitant]
     Dosage: UNK
     Route: 065

REACTIONS (2)
  - Anaemia [Unknown]
  - Aplasia pure red cell [Unknown]
